FAERS Safety Report 7630246-0 (Version None)
Quarter: 2011Q3

REPORT INFORMATION
  Report Type: 
  Country: None (occurrence: None)
  Receive Date: 20110722
  Receipt Date: 20110719
  Transmission Date: 20111222
  Serious: Yes (Other)
  Sender: FDA-Public Use
  Company Number: US-PFIZER INC-2011129631

PATIENT
  Sex: Female
  Weight: 58.503 kg

DRUGS (3)
  1. THYROID TAB [Concomitant]
     Indication: HYPOTHYROIDISM
     Dosage: 60 MG, 1X/DAY
  2. ALPRAZOLAM [Suspect]
     Dosage: 0.5 MG, 2X/DAY
     Route: 048
     Dates: start: 20070101
  3. METOPROLOL [Concomitant]
     Indication: HYPERTENSION
     Dosage: UNK

REACTIONS (6)
  - PALPITATIONS [None]
  - MALAISE [None]
  - REACTION TO COLOURING [None]
  - HYPOTHYROIDISM [None]
  - CHEST PAIN [None]
  - VOMITING [None]
